FAERS Safety Report 20311240 (Version 1)
Quarter: 2022Q1

REPORT INFORMATION
  Report Type: Spontaneous
  Country: US (occurrence: US)
  Receive Date: 20220107
  Receipt Date: 20220107
  Transmission Date: 20220423
  Serious: Yes (Other)
  Sender: FDA-Public Use
  Company Number: US-PFIZER INC-2021540178

PATIENT
  Age: 78 Year
  Sex: Male

DRUGS (2)
  1. LATANOPROST [Suspect]
     Active Substance: LATANOPROST
     Indication: Glaucoma
     Dosage: 2 DROP, DAILY (EVERY NIGHT AT BED TIME, BOTH EYES)
     Dates: start: 20170427
  2. LATANOPROST [Suspect]
     Active Substance: LATANOPROST
     Dosage: 2 DROP, 1X/DAY (1 DROP, EACH EYE, ONCE A DAY)
     Dates: start: 20210419

REACTIONS (3)
  - Blindness [Unknown]
  - Intraocular pressure test abnormal [Unknown]
  - Poor quality product administered [Unknown]
